FAERS Safety Report 15529104 (Version 1)
Quarter: 2018Q4

REPORT INFORMATION
  Report Type: Spontaneous
  Country: ES (occurrence: ES)
  Receive Date: 20181020
  Receipt Date: 20181020
  Transmission Date: 20190205
  Serious: Yes (Death, Other)
  Sender: FDA-Public Use
  Company Number: ES-AUROBINDO-AUR-APL-2018-051240

PATIENT
  Age: 75 Year
  Sex: Female

DRUGS (6)
  1. SIMVASTATIN. [Interacting]
     Active Substance: SIMVASTATIN
     Indication: HYPERCHOLESTEROLAEMIA
     Dosage: || DOSIS UNIDAD FRECUENCIA: 60 MG-MILIGRAMOS || DOSIS POR TOMA: 20 MG-MILIGRAMOS || N? TOMAS POR ...
     Route: 048
     Dates: start: 2013, end: 20150918
  2. TRAMADOL. [Interacting]
     Active Substance: TRAMADOL
     Indication: PRODUCT USED FOR UNKNOWN INDICATION
     Dosage: || DOSIS UNIDAD FRECUENCIA: 150 MG-MILIGRAMOS || DOSIS POR TOMA: 50 MG-MILIGRAMOS || N? TOMAS POR...
     Route: 048
     Dates: start: 2015, end: 20150918
  3. SINTROM [Interacting]
     Active Substance: ACENOCOUMAROL
     Indication: VALVULOPLASTY CARDIAC
     Dosage: UNK
     Route: 048
     Dates: start: 2013, end: 20150918
  4. ALOPURINOL [Interacting]
     Active Substance: ALLOPURINOL
     Indication: PRODUCT USED FOR UNKNOWN INDICATION
     Dosage: || DOSIS UNIDAD FRECUENCIA: 100 MG-MILIGRAMOS || DOSIS POR TOMA: 100 MG-MILIGRAMOS || N? TOMAS PO...
     Route: 048
     Dates: start: 2015, end: 20150918
  5. OMEPRAZOLE. [Suspect]
     Active Substance: OMEPRAZOLE
     Indication: PRODUCT USED FOR UNKNOWN INDICATION
     Dosage: || DOSIS UNIDAD FRECUENCIA: 20 MG-MILIGRAMOS || DOSIS POR TOMA: 20 MG-MILIGRAMOS || N? TOMAS POR ...
     Route: 048
     Dates: start: 2013, end: 20150918
  6. METAMIZOL                          /06276701/ [Concomitant]
     Active Substance: METAMIZOLE
     Indication: PRODUCT USED FOR UNKNOWN INDICATION
     Dosage: || DOSIS UNIDAD FRECUENCIA: 1725 MG-MILIGRAMOS || DOSIS POR TOMA: 575 MG-MILIGRAMOS || N? TOMAS P...
     Route: 048
     Dates: start: 2015, end: 20150918

REACTIONS (1)
  - Cerebral haemorrhage [Fatal]

NARRATIVE: CASE EVENT DATE: 20150918
